FAERS Safety Report 12829458 (Version 1)
Quarter: 2016Q4

REPORT INFORMATION
  Report Type: Spontaneous
  Country: US (occurrence: US)
  Receive Date: 20161007
  Receipt Date: 20161007
  Transmission Date: 20170207
  Serious: No
  Sender: FDA-Public Use
  Company Number: US-SA-2016SA085409

PATIENT
  Age: 69 Year
  Sex: Female

DRUGS (8)
  1. OCUVITE [Concomitant]
     Active Substance: VITAMINS
  2. ASPIRIN. [Concomitant]
     Active Substance: ASPIRIN
  3. AUBAGIO [Suspect]
     Active Substance: TERIFLUNOMIDE
     Indication: MULTIPLE SCLEROSIS
     Route: 048
     Dates: start: 20160323
  4. KEPPRA [Concomitant]
     Active Substance: LEVETIRACETAM
  5. CALCIUM [Concomitant]
     Active Substance: CALCIUM
  6. BACLOFEN. [Concomitant]
     Active Substance: BACLOFEN
  7. VITAMIN D [Concomitant]
     Active Substance: CHOLECALCIFEROL
  8. NORCO [Concomitant]
     Active Substance: ACETAMINOPHEN\HYDROCODONE BITARTRATE

REACTIONS (4)
  - Headache [Unknown]
  - Alopecia [Unknown]
  - Peripheral swelling [Unknown]
  - Blood pressure increased [Unknown]
